FAERS Safety Report 7132372-1 (Version None)
Quarter: 2010Q4

REPORT INFORMATION
  Report Type: 
  Country: None (occurrence: None)
  Receive Date: 20101129
  Receipt Date: 20101129
  Transmission Date: 20110411
  Serious: Yes (Other)
  Sender: FDA-Public Use
  Company Number: None

PATIENT
  Age: 72 Year
  Sex: Female
  Weight: 58.9676 kg

DRUGS (1)
  1. MULTAQ [Suspect]
     Indication: ATRIAL FIBRILLATION
     Dosage: 2XDAY A.M. P.M. BY MOUTH
     Route: 048
     Dates: start: 20100601, end: 20100801

REACTIONS (4)
  - ALOPECIA [None]
  - SWELLING FACE [None]
  - SWOLLEN TONGUE [None]
  - TONGUE DISCOLOURATION [None]
